FAERS Safety Report 15825068 (Version 1)
Quarter: 2019Q1

REPORT INFORMATION
  Report Type: Spontaneous
  Country: US (occurrence: US)
  Receive Date: 20190115
  Receipt Date: 20190115
  Transmission Date: 20190417
  Serious: No
  Sender: FDA-Public Use
  Company Number: US-BIOGEN-2019BI00682585

PATIENT
  Sex: Female

DRUGS (1)
  1. TYSABRI [Suspect]
     Active Substance: NATALIZUMAB
     Indication: MULTIPLE SCLEROSIS
     Route: 065
     Dates: start: 20110125, end: 20110822

REACTIONS (6)
  - Mood altered [Unknown]
  - Lung neoplasm [Unknown]
  - Pyrexia [Unknown]
  - Hepatic neoplasm [Unknown]
  - Depression [Unknown]
  - Emphysema [Unknown]
